FAERS Safety Report 5680024-7 (Version None)
Quarter: 2008Q1

REPORT INFORMATION
  Report Type: 
  Country: None (occurrence: None)
  Receive Date: 20080324
  Receipt Date: 20080310
  Transmission Date: 20080703
  Serious: Yes (Death)
  Sender: FDA-Public Use
  Company Number: TNZDE200800023

PATIENT
  Age: 77 Year
  Sex: Female

DRUGS (24)
  1. INNOHEP [Suspect]
     Indication: THROMBOSIS PROPHYLAXIS
     Dosage: (0.4 ML, DAILY), SUBCUTANEOUS
     Route: 058
     Dates: start: 20030409, end: 20030416
  2. TIMONIL RETARD (CARBAMAZEPINE) [Suspect]
     Indication: GRAND MAL CONVULSION
     Dosage: (600 MG), ORAL
     Route: 048
     Dates: start: 20030301, end: 20030416
  3. PULMICORT (BUDENOSIDE) [Concomitant]
  4. SEREVENT [Concomitant]
  5. EUNERPAN (MELPERONE HYDROCHLORIDE) [Concomitant]
  6. ISOPTIN [Concomitant]
  7. MARCUMAR [Concomitant]
  8. PLAVIX [Concomitant]
  9. CORNEREGEL (DEXPANTHENOL) [Concomitant]
  10. DEPAKENE [Concomitant]
  11. FRISIUM (CLOBAZAM) [Concomitant]
  12. DECORTIN (PREDNISONE) [Suspect]
     Indication: RASH
     Dosage: (30 MG), ORAL
     Route: 048
     Dates: start: 20030220, end: 20030411
  13. DIGOXIN [Suspect]
     Indication: SUPRAVENTRICULAR TACHYCARDIA
     Dosage: (0.2 MG), ORAL
     Route: 048
     Dates: start: 20030314, end: 20030330
  14. THEOPHYLLINE [Suspect]
     Indication: ASTHMA
     Dosage: (400 MG), ORAL
     Route: 048
     Dates: start: 20030314, end: 20030425
  15. DIGITOXIN TAB [Suspect]
     Indication: SUPRAVENTRICULAR TACHYCARDIA
     Dosage: ORAL
     Route: 048
     Dates: start: 20030304, end: 20030425
  16. PANTOPRAZOLE SODIUM [Suspect]
     Indication: PROPHYLAXIS
     Dosage: (20 MG)
     Dates: start: 20030314, end: 20030425
  17. DYTIDE (DYTIDE) [Suspect]
     Indication: HYPERTENSION
     Dosage: (2 DOSAGE FORMS), ORAL
     Route: 048
     Dates: start: 20030314, end: 20030425
  18. CLONAZEPAM [Suspect]
     Indication: GRAND MAL CONVULSION
     Dosage: ORAL
     Route: 048
     Dates: start: 20030331, end: 20030409
  19. DIAZEPAM [Suspect]
     Indication: GRAND MAL CONVULSION
     Dosage: ORAL
     Route: 048
     Dates: start: 20030331, end: 20030409
  20. TAVEGIL (CLEMASTINE) [Suspect]
     Indication: RASH
     Dosage: (2 DOSAGE FORMS), ORAL
     Route: 048
     Dates: start: 20030403, end: 20030409
  21. MCP (METOCLOPRAMIDE) [Suspect]
     Indication: NAUSEA
     Dosage: ORAL
     Route: 048
     Dates: start: 20030409, end: 20030409
  22. FEXOFENADINE HCL [Suspect]
     Indication: RASH
     Dosage: (180 MG), ORAL
     Route: 048
     Dates: start: 20030409, end: 20030410
  23. REPELTIN (ALIMEMAZINE TARTRATE) [Suspect]
     Indication: PRURITUS
     Dosage: (1 DOSAGE FORMS), ORAL
     Route: 048
     Dates: start: 20030410, end: 20030416
  24. BERODUAL (DUOVENT) [Suspect]
     Indication: CHRONIC OBSTRUCTIVE PULMONARY DISEASE
     Dosage: (1 DOSAGE FORMS), INHALATION
     Route: 055
     Dates: start: 20030412, end: 20030416

REACTIONS (3)
  - NAUSEA [None]
  - STEVENS-JOHNSON SYNDROME [None]
  - TOXIC EPIDERMAL NECROLYSIS [None]
